FAERS Safety Report 20521349 (Version 15)
Quarter: 2025Q2

REPORT INFORMATION
  Report Type: Report from Study
  Country: CA (occurrence: CA)
  Receive Date: 20220226
  Receipt Date: 20250617
  Transmission Date: 20250716
  Serious: Yes (Hospitalization, Other)
  Sender: TAKEDA
  Company Number: CA-TAKEDA-2022TUS003141

PATIENT
  Age: 44 Year
  Sex: Male

DRUGS (44)
  1. VEDOLIZUMAB [Suspect]
     Active Substance: VEDOLIZUMAB
     Indication: Colitis ulcerative
  2. VEDOLIZUMAB [Suspect]
     Active Substance: VEDOLIZUMAB
  3. VEDOLIZUMAB [Suspect]
     Active Substance: VEDOLIZUMAB
  4. VEDOLIZUMAB [Suspect]
     Active Substance: VEDOLIZUMAB
     Dosage: 300 MILLIGRAM, Q4WEEKS
     Dates: start: 20220309
  5. VEDOLIZUMAB [Suspect]
     Active Substance: VEDOLIZUMAB
     Dosage: 300 MILLIGRAM, Q4WEEKS
  6. VEDOLIZUMAB [Suspect]
     Active Substance: VEDOLIZUMAB
     Dosage: 300 MILLIGRAM, Q4WEEKS
  7. VEDOLIZUMAB [Suspect]
     Active Substance: VEDOLIZUMAB
     Dosage: 300 MILLIGRAM, Q4WEEKS
  8. VEDOLIZUMAB [Suspect]
     Active Substance: VEDOLIZUMAB
     Dosage: 300 MILLIGRAM, Q4WEEKS
  9. VEDOLIZUMAB [Suspect]
     Active Substance: VEDOLIZUMAB
     Dosage: 300 MILLIGRAM, Q4WEEKS
  10. VEDOLIZUMAB [Suspect]
     Active Substance: VEDOLIZUMAB
     Dosage: 300 MILLIGRAM, Q4WEEKS
  11. VEDOLIZUMAB [Suspect]
     Active Substance: VEDOLIZUMAB
     Dosage: 300 MILLIGRAM, Q4WEEKS
  12. VEDOLIZUMAB [Suspect]
     Active Substance: VEDOLIZUMAB
     Dosage: 300 MILLIGRAM, Q4WEEKS
  13. VEDOLIZUMAB [Suspect]
     Active Substance: VEDOLIZUMAB
     Dosage: 300 MILLIGRAM, Q4WEEKS
  14. ACTOS [Concomitant]
     Active Substance: PIOGLITAZONE HYDROCHLORIDE
  15. ROFLUMILAST [Concomitant]
     Active Substance: ROFLUMILAST
  16. NESINA [Concomitant]
     Active Substance: ALOGLIPTIN BENZOATE
  17. EDARBYCLOR [Concomitant]
     Active Substance: AZILSARTAN KAMEDOXOMIL\CHLORTHALIDONE
  18. TACHOSIL [Concomitant]
     Active Substance: FIBRINOGEN HUMAN\HUMAN THROMBIN
  19. OMNARIS [Concomitant]
     Active Substance: CICLESONIDE
  20. PANTOPRAZOLE SODIUM [Concomitant]
     Active Substance: PANTOPRAZOLE SODIUM
  21. DEXILANT [Concomitant]
     Active Substance: DEXLANSOPRAZOLE
  22. ONDANSETRON [Concomitant]
     Active Substance: ONDANSETRON
  23. PENTASA [Concomitant]
     Active Substance: MESALAMINE
  24. ASACOL [Concomitant]
     Active Substance: MESALAMINE
  25. ALVESCO [Concomitant]
     Active Substance: CICLESONIDE
  26. MESALAMINE [Concomitant]
     Active Substance: MESALAMINE
  27. USTEKINUMAB [Concomitant]
     Active Substance: USTEKINUMAB
  28. PANTOPRAZOLE MAGNESIUM [Concomitant]
     Active Substance: PANTOPRAZOLE MAGNESIUM
  29. ADALIMUMAB [Concomitant]
     Active Substance: ADALIMUMAB
  30. TOFACITINIB [Concomitant]
     Active Substance: TOFACITINIB
  31. KAZANO [Concomitant]
     Active Substance: ALOGLIPTIN BENZOATE\METFORMIN HYDROCHLORIDE
  32. Salofalk [Concomitant]
  33. REMICADE [Concomitant]
     Active Substance: INFLIXIMAB
  34. TYSABRI [Concomitant]
     Active Substance: NATALIZUMAB
  35. SIMPONI [Concomitant]
     Active Substance: GOLIMUMAB
  36. CIMZIA [Concomitant]
     Active Substance: CERTOLIZUMAB PEGOL
  37. PURINETHOL [Concomitant]
     Active Substance: MERCAPTOPURINE
  38. CIPROFLOXACIN [Concomitant]
     Active Substance: CIPROFLOXACIN
     Dosage: 50 MILLIGRAM, BID
     Dates: start: 2009
  39. METRONIDAZOLE [Concomitant]
     Active Substance: METRONIDAZOLE
     Dosage: 250 MILLIGRAM, QD
     Dates: start: 2009
  40. ENTOCORT [Concomitant]
     Active Substance: BUDESONIDE
     Dosage: UNK UNK, QD
     Dates: start: 2009
  41. AMLODIPINE [Concomitant]
     Active Substance: AMLODIPINE BESYLATE
  42. STELARA [Concomitant]
     Active Substance: USTEKINUMAB
  43. XELJANZ [Concomitant]
     Active Substance: TOFACITINIB CITRATE
  44. Panto [Concomitant]

REACTIONS (10)
  - Colitis ulcerative [Unknown]
  - Intestinal obstruction [Unknown]
  - Haematochezia [Unknown]
  - Frequent bowel movements [Unknown]
  - Pouchitis [Unknown]
  - Off label use [Unknown]
  - Anal incontinence [Unknown]
  - Defaecation urgency [Unknown]
  - Diarrhoea [Unknown]
  - Abdominal pain [Unknown]

NARRATIVE: CASE EVENT DATE: 20220309
